FAERS Safety Report 17905900 (Version 1)
Quarter: 2020Q2

REPORT INFORMATION
  Report Type: Spontaneous
  Country: US (occurrence: US)
  Receive Date: 20200617
  Receipt Date: 20200617
  Transmission Date: 20200714
  Serious: Yes (Death, Other)
  Sender: FDA-Public Use
  Company Number: US-SUN PHARMACEUTICAL INDUSTRIES LTD-2020R1-249973

PATIENT
  Age: 38 Year
  Sex: Female

DRUGS (5)
  1. CYCLOPHOSPHAMIDE. [Suspect]
     Active Substance: CYCLOPHOSPHAMIDE
     Indication: LUPUS PNEUMONITIS
     Dosage: UNK
     Route: 065
  2. ZANAMIVIR [Suspect]
     Active Substance: ZANAMIVIR
     Indication: LUPUS PNEUMONITIS
     Dosage: UNK
  3. PREDNISONE. [Suspect]
     Active Substance: PREDNISONE
     Indication: LUPUS PNEUMONITIS
     Dosage: 20 MILLIGRAM, DAILY
     Route: 065
  4. RIBAVIRIN. [Suspect]
     Active Substance: RIBAVIRIN
     Indication: LUPUS PNEUMONITIS
     Dosage: UNK
     Route: 065
  5. METHYLPREDNISOLONE. [Suspect]
     Active Substance: METHYLPREDNISOLONE
     Indication: LUPUS PNEUMONITIS
     Dosage: UNK
     Route: 065

REACTIONS (6)
  - Pneumonitis [Fatal]
  - Hypotension [Fatal]
  - Pneumonia [Fatal]
  - Cardiac arrest [Fatal]
  - Coronavirus infection [Fatal]
  - Diffuse alveolar damage [Fatal]
